FAERS Safety Report 12105305 (Version 1)
Quarter: 2016Q1

REPORT INFORMATION
  Report Type: Spontaneous
  Country: US (occurrence: US)
  Receive Date: 20160223
  Receipt Date: 20160223
  Transmission Date: 20160526
  Serious: No
  Sender: FDA-Public Use
  Company Number: GXBR2015US002574

PATIENT
  Sex: Female

DRUGS (1)
  1. NITRO-BID [Suspect]
     Active Substance: NITROGLYCERIN
     Indication: CARDIAC DISORDER
     Dosage: 2 %, UNK
     Route: 061

REACTIONS (2)
  - Headache [Not Recovered/Not Resolved]
  - Breakthrough pain [Not Recovered/Not Resolved]
